FAERS Safety Report 6383425-7 (Version None)
Quarter: 2009Q3

REPORT INFORMATION
  Report Type: 
  Country: None (occurrence: None)
  Receive Date: 20090929
  Receipt Date: 20090929
  Transmission Date: 20100115
  Serious: Yes (Life-Threatening, Hospitalization)
  Sender: FDA-Public Use
  Company Number: None

PATIENT
  Age: 39 Year
  Sex: Female

DRUGS (2)
  1. TRUETEST EPICUTANOUS PATCH TEST [Suspect]
     Indication: DERMATITIS CONTACT
     Dosage: SINGLE USE CUTANEOUS 003
     Route: 003
     Dates: start: 20090901, end: 20090902
  2. ALLERGY SHOTS [Concomitant]

REACTIONS (1)
  - ANAPHYLACTIC REACTION [None]
